FAERS Safety Report 17219613 (Version 3)
Quarter: 2020Q4

REPORT INFORMATION
  Report Type: Spontaneous
  Country: US (occurrence: US)
  Receive Date: 20191231
  Receipt Date: 20201229
  Transmission Date: 20210113
  Serious: Yes (Other)
  Sender: FDA-Public Use
  Company Number: US-GILEAD-2019-0444835

PATIENT
  Sex: Male
  Weight: 56.69 kg

DRUGS (36)
  1. VIREAD [Suspect]
     Active Substance: TENOFOVIR DISOPROXIL FUMARATE
     Indication: HIV INFECTION
     Dosage: UNK
     Route: 065
     Dates: start: 2001, end: 2006
  2. EMTRIVA [Concomitant]
     Active Substance: EMTRICITABINE
  3. GENVOYA [Concomitant]
     Active Substance: COBICISTAT\ELVITEGRAVIR\EMTRICITABINE\TENOFOVIR ALAFENAMIDE FUMARATE
  4. VIDEX [Concomitant]
     Active Substance: DIDANOSINE
  5. ZIAGEN [Concomitant]
     Active Substance: ABACAVIR SULFATE
  6. PREZISTA [Concomitant]
     Active Substance: DARUNAVIR ETHANOLATE
  7. RESCRIPTOR [Concomitant]
     Active Substance: DELAVIRDINE MESYLATE
  8. REYATAZ [Concomitant]
     Active Substance: ATAZANAVIR SULFATE
  9. SELZENTRY [Concomitant]
     Active Substance: MARAVIROC
  10. TIVICAY [Concomitant]
     Active Substance: DOLUTEGRAVIR SODIUM
  11. TRUVADA [Suspect]
     Active Substance: EMTRICITABINE\TENOFOVIR DISOPROXIL FUMARATE
     Indication: HIV INFECTION
     Dosage: UNK
     Route: 048
     Dates: start: 20080128, end: 201606
  12. INTELENCE [Concomitant]
     Active Substance: ETRAVIRINE
  13. HALOPERIDOL. [Concomitant]
     Active Substance: HALOPERIDOL
  14. VITEKTA [Concomitant]
     Active Substance: ELVITEGRAVIR
  15. BENZTROPINE MESILATE [Concomitant]
     Active Substance: BENZTROPINE MESYLATE
  16. CRIXIVAN [Concomitant]
     Active Substance: INDINAVIR SULFATE
  17. ISENTRESS [Concomitant]
     Active Substance: RALTEGRAVIR POTASSIUM
  18. NORVIR [Concomitant]
     Active Substance: RITONAVIR
  19. RETROVIR [Concomitant]
     Active Substance: ZIDOVUDINE
  20. ZERIT [Concomitant]
     Active Substance: STAVUDINE
  21. COLESTIPOL [Concomitant]
     Active Substance: COLESTIPOL
  22. APTIVUS [Concomitant]
     Active Substance: TIPRANAVIR
  23. TRIZIVIR [Concomitant]
     Active Substance: ABACAVIR SULFATE\LAMIVUDINE\ZIDOVUDINE
  24. COMPLERA [Suspect]
     Active Substance: EMTRICITABINE\RILPIVIRINE HYDROCHLORIDE\TENOFOVIR DISOPROXIL FUMARATE
     Indication: HIV INFECTION
     Dosage: UNK
     Route: 048
     Dates: start: 20140617, end: 201406
  25. STRIBILD [Suspect]
     Active Substance: COBICISTAT\ELVITEGRAVIR\EMTRICITABINE\TENOFOVIR DISOPROXIL FUMARATE
     Indication: HIV INFECTION
     Route: 065
  26. DESCOVY [Concomitant]
     Active Substance: EMTRICITABINE\TENOFOVIR ALAFENAMIDE FUMARATE
  27. FUZEON [Concomitant]
     Active Substance: ENFUVIRTIDE
  28. TRIUMEQ [Concomitant]
     Active Substance: ABACAVIR SULFATE\DOLUTEGRAVIR SODIUM\LAMIVUDINE
  29. COMBIVIR [Concomitant]
     Active Substance: LAMIVUDINE\ZIDOVUDINE
  30. TROGARZO [IBALIZUMAB-UIYK] [Concomitant]
  31. TYBOST [Concomitant]
     Active Substance: COBICISTAT
  32. VIRACEPT [Concomitant]
     Active Substance: NELFINAVIR MESYLATE
  33. LEXIVA [Concomitant]
     Active Substance: FOSAMPRENAVIR CALCIUM
  34. EPIVIR [Concomitant]
     Active Substance: LAMIVUDINE
  35. KALETRA [Concomitant]
     Active Substance: LOPINAVIR\RITONAVIR
  36. BENZTROPINE [BENZATROPINE] [Concomitant]
     Active Substance: BENZTROPINE

REACTIONS (7)
  - Anxiety [Not Recovered/Not Resolved]
  - Emotional distress [Not Recovered/Not Resolved]
  - Economic problem [Not Recovered/Not Resolved]
  - Anhedonia [Not Recovered/Not Resolved]
  - Chronic kidney disease [Not Recovered/Not Resolved]
  - Depression [Not Recovered/Not Resolved]
  - Pain [Not Recovered/Not Resolved]

NARRATIVE: CASE EVENT DATE: 2014
